FAERS Safety Report 6282488-7 (Version None)
Quarter: 2009Q3

REPORT INFORMATION
  Report Type: 
  Country: None (occurrence: None)
  Receive Date: 20090724
  Receipt Date: 20090529
  Transmission Date: 20100115
  Serious: Yes (Life-Threatening)
  Sender: FDA-Public Use
  Company Number: PL-JNJFOC-20090706902

PATIENT
  Age: 65 Year
  Sex: Male

DRUGS (4)
  1. ORUNGAL [Suspect]
     Indication: FUNGAL INFECTION
     Route: 048
  2. AMBISOME [Suspect]
     Indication: DRUG USE FOR UNKNOWN INDICATION
     Route: 042
  3. KETOCONAZOLE [Concomitant]
  4. INSULIN [Concomitant]

REACTIONS (9)
  - ARRHYTHMIA [None]
  - BLOOD PRESSURE SYSTOLIC INCREASED [None]
  - CHOKING [None]
  - COMA [None]
  - DYSPHAGIA [None]
  - ELECTROLYTE IMBALANCE [None]
  - HEMIPARESIS [None]
  - RESPIRATORY FAILURE [None]
  - VITH NERVE PARALYSIS [None]
